FAERS Safety Report 7578374-2 (Version None)
Quarter: 2011Q2

REPORT INFORMATION
  Report Type: 
  Country: None (occurrence: None)
  Receive Date: 20110628
  Receipt Date: 20110623
  Transmission Date: 20111010
  Serious: Yes (Life-Threatening, Hospitalization, Other)
  Sender: FDA-Public Use
  Company Number: JP-ABBOTT-11P-087-0698026-00

PATIENT
  Sex: Male
  Weight: 29.6 kg

DRUGS (9)
  1. HUMIRA [Suspect]
     Dates: start: 20101209, end: 20101209
  2. TEPRENONE [Concomitant]
     Indication: PRODUCT USED FOR UNKNOWN INDICATION
  3. LEVOFLOXACIN HYDRATE [Concomitant]
     Indication: CROHN'S DISEASE
     Dosage: 500MG DAILY
     Route: 048
  4. ACETAMINOPHEN [Concomitant]
     Indication: PRODUCT USED FOR UNKNOWN INDICATION
  5. PREDNISOLONE [Concomitant]
     Indication: CROHN'S DISEASE
     Dosage: 5MG DAILY
     Route: 048
  6. ZOLPIDEM TARTRATE [Concomitant]
     Indication: PRODUCT USED FOR UNKNOWN INDICATION
  7. HUMIRA [Suspect]
     Indication: CROHN'S DISEASE
     Route: 058
     Dates: start: 20101125, end: 20101125
  8. HUMIRA [Suspect]
     Dates: start: 20101223, end: 20101223
  9. AZATHIOPRINE [Concomitant]
     Indication: CROHN'S DISEASE
     Dosage: 50MG DAILY
     Route: 048

REACTIONS (5)
  - ABSCESS [None]
  - ANORECTAL VARICES HAEMORRHAGE [None]
  - ANAL HAEMORRHAGE [None]
  - DRUG INEFFECTIVE [None]
  - FISTULA [None]
